FAERS Safety Report 11587360 (Version 1)
Quarter: 2015Q4

REPORT INFORMATION
  Report Type: Spontaneous
  Country: US (occurrence: US)
  Receive Date: 20151001
  Receipt Date: 20151001
  Transmission Date: 20160304
  Serious: Yes (Life-Threatening, Hospitalization, Other)
  Sender: FDA-Public Use
  Company Number: PHHY2015US116663

PATIENT
  Age: 18 Year
  Sex: Male
  Weight: 66 kg

DRUGS (1)
  1. ISONIAZID. [Suspect]
     Active Substance: ISONIAZID
     Indication: TUBERCULOSIS
     Dosage: 300 MG, 5 TABLETS
     Route: 065

REACTIONS (3)
  - Intentional overdose [Unknown]
  - Respiratory failure [Recovered/Resolved]
  - Seizure [Recovered/Resolved]
